FAERS Safety Report 18878832 (Version 1)
Quarter: 2021Q1

REPORT INFORMATION
  Report Type: Spontaneous
  Country: US (occurrence: US)
  Receive Date: 20210210
  Receipt Date: 20210210
  Transmission Date: 20210420
  Serious: Yes (Disabling)
  Sender: FDA-Public Use
  Company Number: None

PATIENT
  Age: 78 Year
  Sex: Female
  Weight: 61.23 kg

DRUGS (4)
  1. FLORADIX [Concomitant]
     Active Substance: IRON
  2. RESTASIS [Suspect]
     Active Substance: CYCLOSPORINE
     Indication: DRY EYE
     Dosage: ?          QUANTITY:1?3 DROPS;OTHER ROUTE:EYE DROPS?
     Dates: start: 20201001, end: 20210121
  3. VITAMIN D [Concomitant]
     Active Substance: VITAMIN D NOS
  4. VITAMIN B12 [Concomitant]
     Active Substance: CYANOCOBALAMIN

REACTIONS (22)
  - Diarrhoea [None]
  - Muscular weakness [None]
  - Paraesthesia [None]
  - Nightmare [None]
  - Ear pain [None]
  - Fatigue [None]
  - Eye pain [None]
  - Dizziness [None]
  - Ear discomfort [None]
  - Arthralgia [None]
  - Asthenia [None]
  - Tinnitus [None]
  - Impaired quality of life [None]
  - Back pain [None]
  - Balance disorder [None]
  - Visual impairment [None]
  - Abdominal pain [None]
  - Gait disturbance [None]
  - Somnolence [None]
  - Ocular discomfort [None]
  - Dysgeusia [None]
  - Hypoaesthesia [None]

NARRATIVE: CASE EVENT DATE: 20210121
